FAERS Safety Report 19189143 (Version 1)
Quarter: 2021Q2

REPORT INFORMATION
  Report Type: Report from Study
  Country: None (occurrence: TW)
  Receive Date: 20210428
  Receipt Date: 20210428
  Transmission Date: 20210717
  Serious: Yes (Hospitalization, Other)
  Sender: FDA-Public Use
  Company Number: TW-ABBVIE-21K-153-3872993-00

PATIENT
  Age: 21 Year
  Sex: Male
  Weight: 49.8 kg

DRUGS (1)
  1. HUMIRA [Suspect]
     Active Substance: ADALIMUMAB
     Indication: CROHN^S DISEASE
     Route: 058
     Dates: start: 20210330

REACTIONS (6)
  - Intestinal dilatation [Unknown]
  - Gastrointestinal wall thickening [Unknown]
  - Intestinal stenosis [Unknown]
  - Inflammation [Unknown]
  - Obstruction gastric [Unknown]
  - Abdominal pain [Not Recovered/Not Resolved]

NARRATIVE: CASE EVENT DATE: 20210411
